FAERS Safety Report 6908562-7 (Version None)
Quarter: 2010Q3

REPORT INFORMATION
  Report Type: 
  Country: None (occurrence: None)
  Receive Date: 20100805
  Receipt Date: 20100727
  Transmission Date: 20110219
  Serious: Yes (Other)
  Sender: FDA-Public Use
  Company Number: FR-JNJFOC-20100607664

PATIENT
  Sex: Male
  Weight: 50 kg

DRUGS (6)
  1. PREZISTA [Suspect]
     Indication: HIV INFECTION
  2. PREZISTA [Suspect]
  3. NORVIR [Suspect]
     Indication: HIV INFECTION
     Route: 048
  4. NORVIR [Suspect]
     Route: 048
  5. BACTRIM [Suspect]
     Indication: TOXOPLASMOSIS
     Route: 048
  6. TRIFLUCAN [Concomitant]
     Indication: CANDIDIASIS
     Route: 048

REACTIONS (2)
  - CHOLESTASIS [None]
  - CYTOLYTIC HEPATITIS [None]
